FAERS Safety Report 18953227 (Version 1)
Quarter: 2021Q1

REPORT INFORMATION
  Report Type: Spontaneous
  Country: US (occurrence: US)
  Receive Date: 20210228
  Receipt Date: 20210228
  Transmission Date: 20210420
  Serious: No
  Sender: FDA-Public Use
  Company Number: None

PATIENT
  Age: 53 Year
  Sex: Female
  Weight: 63 kg

DRUGS (4)
  1. WOMEN^S MULTI [Concomitant]
  2. COD LIVER OIL [Concomitant]
     Active Substance: COD LIVER OIL
  3. BOTOX [Suspect]
     Active Substance: ONABOTULINUMTOXINA
     Indication: SKIN COSMETIC PROCEDURE
  4. BIOTIN [Concomitant]
     Active Substance: BIOTIN

REACTIONS (3)
  - Victim of crime [None]
  - Therapeutic response shortened [None]
  - Extra dose administered [None]

NARRATIVE: CASE EVENT DATE: 20210112
